FAERS Safety Report 6983618-1 (Version None)
Quarter: 2010Q3

REPORT INFORMATION
  Report Type: 
  Country: None (occurrence: None)
  Receive Date: 20100914
  Receipt Date: 20080829
  Transmission Date: 20110219
  Serious: No
  Sender: FDA-Public Use
  Company Number: US-WYE-H05820908

PATIENT
  Age: 72 Year
  Sex: Male
  Weight: 86.26 kg

DRUGS (4)
  1. ADVIL LIQUI-GELS [Suspect]
     Indication: SPONDYLITIS
     Dosage: 3 LIQUI-GELS PRIOR TO BEDTIME PER PHYSICIAN
     Route: 048
     Dates: start: 20080828, end: 20080828
  2. TRAZODONE HCL [Concomitant]
  3. LOVASTATIN [Concomitant]
  4. ACETYLSALICYLIC ACID [Concomitant]

REACTIONS (6)
  - BURNING SENSATION [None]
  - ERYTHEMA [None]
  - FEELING HOT [None]
  - PRURITUS [None]
  - RASH [None]
  - RASH MACULAR [None]
